FAERS Safety Report 7257166-8 (Version None)
Quarter: 2011Q1

REPORT INFORMATION
  Report Type: 
  Country: None (occurrence: None)
  Receive Date: 20110129
  Receipt Date: 20100816
  Transmission Date: 20110831
  Serious: No
  Sender: FDA-Public Use
  Company Number: US-ABBOTT-10P-163-0664645-00

PATIENT
  Sex: Male
  Weight: 113.5 kg

DRUGS (2)
  1. HUMIRA [Suspect]
     Indication: PSORIASIS
     Route: 058
     Dates: start: 20100601
  2. ALBUTEROL [Concomitant]
     Indication: ASTHMA
     Dosage: ONE TO TWO PUFFS EVERY FOUR TO SIX HOURS

REACTIONS (1)
  - INJECTION SITE PAIN [None]
